FAERS Safety Report 6518551-2 (Version None)
Quarter: 2009Q4

REPORT INFORMATION
  Report Type: 
  Country: None (occurrence: None)
  Receive Date: 20091226
  Receipt Date: 20091222
  Transmission Date: 20100525
  Serious: Yes (Other)
  Sender: FDA-Public Use
  Company Number: FI-JNJFOC-20091206474

PATIENT

DRUGS (2)
  1. FAMOTIDINE [Suspect]
  2. FAMOTIDINE [Suspect]
     Indication: DRUG USE FOR UNKNOWN INDICATION

REACTIONS (2)
  - AGRANULOCYTOSIS [None]
  - PYREXIA [None]
